FAERS Safety Report 10731986 (Version 5)
Quarter: 2015Q1

REPORT INFORMATION
  Report Type: Spontaneous
  Country: JP (occurrence: JP)
  Receive Date: 20150123
  Receipt Date: 20150320
  Transmission Date: 20150721
  Serious: Yes (Life-Threatening, Disabling, Other)
  Sender: FDA-Public Use
  Company Number: JP-009507513-1501JPN007480

PATIENT
  Age: 63 Year
  Sex: Female
  Weight: 60 kg

DRUGS (8)
  1. NASEA [Concomitant]
     Active Substance: RAMOSETRON HYDROCHLORIDE
     Indication: PROPHYLAXIS OF NAUSEA AND VOMITING
     Dosage: 1 DOSAGE FORM, QD, DIVIDED DOSE FREQUENCY UNKNOWN
     Route: 048
     Dates: start: 20140718, end: 20140829
  2. TEMODAL [Suspect]
     Active Substance: TEMOZOLOMIDE
     Indication: GLIOBLASTOMA MULTIFORME
     Dosage: 120 MG, QD, DEVIDED DOSE FREQUENCY UNKNOWN
     Route: 041
     Dates: start: 20140718, end: 20140729
  3. FERON [Suspect]
     Active Substance: INTERFERON BETA
     Indication: GLIOBLASTOMA MULTIFORME
     Dosage: THREE MILLION X 16 TIMES, DAILY DOSE UNKNOWN
     Route: 041
     Dates: start: 20140725, end: 20140829
  4. BAKTAR [Concomitant]
     Active Substance: SULFAMETHOXAZOLE\TRIMETHOPRIM
     Indication: ANTIFUNGAL PROPHYLAXIS
     Dosage: 1 DOSAGE FORMS, TWICE A DAY, MONDAY, WEDNESDAY AND FRIDAY
     Route: 048
     Dates: start: 20140725
  5. TEMODAL [Suspect]
     Active Substance: TEMOZOLOMIDE
     Indication: GLIOBLASTOMA MULTIFORME
     Dosage: 120 MG, QD, DIVIDED FREQUENCY UNKNOWN
     Route: 048
     Dates: start: 20140730, end: 20140829
  6. ONCOVIN [Suspect]
     Active Substance: VINCRISTINE SULFATE
     Indication: GLIOBLASTOMA MULTIFORME
     Dosage: 1 MG, QD, DIVIDED DOSE FREQUENCY UNKNOWN
     Route: 041
     Dates: start: 20140722, end: 20140723
  7. BETAMETHASONE [Concomitant]
     Active Substance: BETAMETHASONE
     Indication: BRAIN OEDEMA
     Dosage: 4 MG, QD, DIVIDED DOSE FREQUENCY UNKNOWN
     Route: 048
     Dates: start: 20140801, end: 20140818
  8. BETAMETHASONE [Concomitant]
     Active Substance: BETAMETHASONE
     Dosage: 2 MG, QD, DIVIDED DOSE FREQUENCY UNKNOWN
     Route: 048
     Dates: start: 20140819, end: 20140918

REACTIONS (2)
  - Pancytopenia [Recovering/Resolving]
  - Sepsis [Recovering/Resolving]

NARRATIVE: CASE EVENT DATE: 20140825
